FAERS Safety Report 17792466 (Version 1)
Quarter: 2020Q2

REPORT INFORMATION
  Report Type: Spontaneous
  Country: US (occurrence: US)
  Receive Date: 20200515
  Receipt Date: 20200515
  Transmission Date: 20200714
  Serious: No
  Sender: FDA-Public Use
  Company Number: US-GLAXOSMITHKLINE-US2020AMR076993

PATIENT
  Sex: Female

DRUGS (2)
  1. ZEJULA [Suspect]
     Active Substance: NIRAPARIB
     Indication: OVARIAN CANCER
  2. ZEJULA [Suspect]
     Active Substance: NIRAPARIB
     Indication: BREAST CANCER
     Dosage: UNK
     Dates: start: 201706

REACTIONS (6)
  - Fatigue [Unknown]
  - Dyspnoea [Unknown]
  - Feeling abnormal [Unknown]
  - Anaemia [Unknown]
  - Full blood count decreased [Unknown]
  - Asthenia [Unknown]
